FAERS Safety Report 5285141-1 (Version None)
Quarter: 2007Q2

REPORT INFORMATION
  Report Type: 
  Country: None (occurrence: None)
  Receive Date: 20070403
  Receipt Date: 20061206
  Transmission Date: 20071010
  Serious: Yes (Hospitalization)
  Sender: FDA-Public Use
  Company Number: FR-PFIZER INC-2006153497

PATIENT
  Sex: Male

DRUGS (6)
  1. VIRACEPT [Suspect]
     Indication: HIV TEST POSITIVE
     Route: 048
  2. COMBIVIR [Suspect]
     Indication: HIV TEST POSITIVE
     Route: 048
  3. ZIDOVUDINE [Suspect]
     Indication: HIV TEST POSITIVE
     Route: 042
  4. ALDOMET [Concomitant]
  5. EUPRESSYL [Concomitant]
  6. TRANDATE [Concomitant]

REACTIONS (2)
  - DRUG EXPOSURE DURING PREGNANCY [None]
  - STRABISMUS [None]
